FAERS Safety Report 16177972 (Version 1)
Quarter: 2019Q2

REPORT INFORMATION
  Report Type: Spontaneous
  Country: US (occurrence: US)
  Receive Date: 20190410
  Receipt Date: 20190410
  Transmission Date: 20190711
  Serious: No
  Sender: FDA-Public Use
  Company Number: US-ALKEM LABORATORIES LIMITED-US-ALKEM-2018-03405

PATIENT
  Sex: Female
  Weight: 50 kg

DRUGS (6)
  1. QUETIAPINE FUMARATE. [Suspect]
     Active Substance: QUETIAPINE FUMARATE
     Indication: PRODUCT USED FOR UNKNOWN INDICATION
     Dosage: 200 MG, QD AT BEDTIME
     Route: 048
  2. LAMOTRIGINE. [Concomitant]
     Active Substance: LAMOTRIGINE
     Indication: DISSOCIATIVE IDENTITY DISORDER
  3. LAMOTRIGINE. [Concomitant]
     Active Substance: LAMOTRIGINE
     Indication: ATTENTION DEFICIT/HYPERACTIVITY DISORDER
  4. LAMOTRIGINE. [Concomitant]
     Active Substance: LAMOTRIGINE
     Indication: ANXIETY DISORDER
  5. LAMOTRIGINE. [Concomitant]
     Active Substance: LAMOTRIGINE
     Indication: MAJOR DEPRESSION
     Dosage: 200 MG, QD
     Route: 048
     Dates: start: 201605, end: 20180405
  6. LAMOTRIGINE. [Concomitant]
     Active Substance: LAMOTRIGINE
     Indication: PSYCHOTIC DISORDER
     Dosage: 200 MG, QD
     Route: 048
     Dates: start: 20180406

REACTIONS (1)
  - Adverse event [Unknown]
